FAERS Safety Report 23295906 (Version 1)
Quarter: 2023Q4

REPORT INFORMATION
  Report Type: Spontaneous
  Country: US (occurrence: None)
  Receive Date: 20231213
  Receipt Date: 20231213
  Transmission Date: 20240110
  Serious: Yes (Disabling)
  Sender: FDA-Public Use
  Company Number: None

PATIENT
  Age: 65 Year
  Sex: Male
  Weight: 86.4 kg

DRUGS (7)
  1. HERBALS [Suspect]
     Active Substance: HERBALS
     Indication: Pain
     Dosage: OTHER QUANTITY : 1 BAG;?
     Route: 048
     Dates: start: 20220702, end: 20231124
  2. HERBALS [Suspect]
     Active Substance: HERBALS
     Indication: Inflammation
  3. DEXAMETHASONE [Suspect]
     Active Substance: DEXAMETHASONE
  4. PIROXICAM [Suspect]
     Active Substance: PIROXICAM
  5. FAMOTIDINE [Concomitant]
     Active Substance: FAMOTIDINE
  6. Adult multi-vitamin [Concomitant]
  7. IRON [Concomitant]
     Active Substance: IRON

REACTIONS (4)
  - Pain [None]
  - Myalgia [None]
  - Tendon pain [None]
  - Steroid withdrawal syndrome [None]

NARRATIVE: CASE EVENT DATE: 20231124
